FAERS Safety Report 23213834 (Version 1)
Quarter: 2023Q4

REPORT INFORMATION
  Report Type: Spontaneous
  Country: JP (occurrence: JP)
  Receive Date: 20231121
  Receipt Date: 20231121
  Transmission Date: 20240110
  Serious: Yes (Other)
  Sender: FDA-Public Use
  Company Number: JP-002147023-NVSJ2023JP015885

PATIENT
  Age: 91 Year
  Sex: Female

DRUGS (3)
  1. ENTRESTO [Suspect]
     Active Substance: SACUBITRIL\VALSARTAN
     Indication: Hypertension
     Dosage: UNK
     Route: 048
  2. ENTRESTO [Suspect]
     Active Substance: SACUBITRIL\VALSARTAN
     Indication: Cardiac failure
  3. VALSARTAN [Suspect]
     Active Substance: VALSARTAN
     Indication: Hypertension
     Dosage: UNK
     Route: 065

REACTIONS (8)
  - Blood pressure decreased [Recovered/Resolved]
  - Dementia Alzheimer^s type [Unknown]
  - Syncope [Recovered/Resolved]
  - Fluid intake reduced [Unknown]
  - Dehydration [Unknown]
  - Fall [Unknown]
  - Oedema [Unknown]
  - Weight decreased [Unknown]
